FAERS Safety Report 5957299-X (Version None)
Quarter: 2008Q4

REPORT INFORMATION
  Report Type: 
  Country: None (occurrence: None)
  Receive Date: 20081118
  Receipt Date: 20081112
  Transmission Date: 20090506
  Serious: Yes (Other)
  Sender: FDA-Public Use
  Company Number: DE-B.I. PHARMACEUTICALS,INC./RIDGEFIELD-2008-DE-06935DE

PATIENT
  Sex: Female
  Weight: 70 kg

DRUGS (6)
  1. SIFROL [Suspect]
     Indication: RESTLESS LEGS SYNDROME
     Dosage: .18MG
     Dates: start: 20080908
  2. OPTIVIT [Concomitant]
     Indication: PRURITUS
     Dosage: 500MG
  3. OPTIVIT [Concomitant]
     Indication: PROPHYLAXIS
  4. DEKRISTOL [Concomitant]
     Dosage: 20MG
  5. GINKO [Concomitant]
     Dosage: 120MG
  6. L-THYROX [Concomitant]
     Indication: THYROID DISORDER
     Dosage: 50MCG

REACTIONS (1)
  - GASTRIC HAEMORRHAGE [None]
